FAERS Safety Report 5811141-6 (Version None)
Quarter: 2008Q3

REPORT INFORMATION
  Report Type: 
  Country: None (occurrence: None)
  Receive Date: 20080710
  Receipt Date: 20080704
  Transmission Date: 20090109
  Serious: Yes (Life-Threatening, Hospitalization)
  Sender: FDA-Public Use
  Company Number: TPG2008A00907

PATIENT
  Age: 58 Year
  Sex: Male

DRUGS (1)
  1. COMPETACT (PIOGLITAZONE HYDROCHLORIDE,METFORMIN  PIOGLITAZONE 15 MG AN [Suspect]
     Indication: TYPE 2 DIABETES MELLITUS
     Dosage: PIOGLITAZONE 15 MG AND 850 MG, PER ORAL; APPROX. 3 MONTHS AGO
     Route: 048

REACTIONS (1)
  - THROMBOCYTOPENIA [None]
